FAERS Safety Report 7424193-7 (Version None)
Quarter: 2011Q2

REPORT INFORMATION
  Report Type: 
  Country: None (occurrence: None)
  Receive Date: 20110419
  Receipt Date: 20110411
  Transmission Date: 20111010
  Serious: Yes (Hospitalization)
  Sender: FDA-Public Use
  Company Number: FR-MERCK-1104FRA00048

PATIENT
  Age: 50 Year
  Sex: Male

DRUGS (8)
  1. ATAZANAVIR SULFATE [Suspect]
     Indication: HIV INFECTION
     Route: 048
     Dates: start: 20060331, end: 20110107
  2. ISONIAZID [Concomitant]
     Route: 065
     Dates: start: 20100801
  3. EMTRICITABINE AND TENOFOVIR DISOPROXIL FUMARATE [Suspect]
     Indication: HIV INFECTION
     Route: 048
     Dates: start: 20101119, end: 20110107
  4. ENOXAPARIN SODIUM [Concomitant]
     Route: 058
     Dates: start: 20100801
  5. SULFAMETHOXAZOLE AND TRIMETHOPRIM [Concomitant]
     Route: 048
     Dates: start: 20000101
  6. ISENTRESS [Suspect]
     Indication: HIV INFECTION
     Route: 048
     Dates: start: 20101119, end: 20110107
  7. FOLIC ACID [Concomitant]
     Route: 065
     Dates: start: 20100801
  8. ETRAVIRINE [Suspect]
     Indication: HIV INFECTION
     Route: 048
     Dates: start: 20101217, end: 20110107

REACTIONS (8)
  - FOOD INTOLERANCE [None]
  - BLOOD CREATININE INCREASED [None]
  - DRUG RASH WITH EOSINOPHILIA AND SYSTEMIC SYMPTOMS [None]
  - CYTOMEGALOVIRUS TEST POSITIVE [None]
  - BLOOD PHOSPHORUS INCREASED [None]
  - MYCOBACTERIUM TEST POSITIVE [None]
  - BLOOD UREA INCREASED [None]
  - ROSEOLOVIRUS TEST POSITIVE [None]
